FAERS Safety Report 4660644-9 (Version None)
Quarter: 2005Q2

REPORT INFORMATION
  Report Type: 
  Country: None (occurrence: None)
  Receive Date: 20050512
  Receipt Date: 20050419
  Transmission Date: 20051028
  Serious: Yes (Other)
  Sender: FDA-Public Use
  Company Number: PHEH2005US04655

PATIENT
  Age: 85 Year
  Sex: Male

DRUGS (6)
  1. THALIDOMIDE [Concomitant]
     Indication: MULTIPLE MYELOMA
     Dosage: 100 MG, QD
     Route: 048
     Dates: start: 20041230, end: 20050115
  2. DOCUSATE SODIUM [Concomitant]
  3. DECADRON [Concomitant]
     Indication: MULTIPLE MYELOMA
     Dosage: 40 MG, QD FOR 4 DAYS
     Dates: start: 20041224
  4. PROTONIX [Concomitant]
  5. OXYCODONE HCL [Concomitant]
  6. ZOMETA [Suspect]
     Indication: HYPERCALCAEMIA
     Dosage: 4 MG ONCE
     Dates: start: 20041221

REACTIONS (5)
  - BLOOD CREATININE INCREASED [None]
  - ECHOGRAPHY ABNORMAL [None]
  - OSTEOPOROSIS [None]
  - RENAL FAILURE [None]
  - SPINAL FRACTURE [None]
